FAERS Safety Report 8399023-X (Version None)
Quarter: 2012Q2

REPORT INFORMATION
  Report Type: 
  Country: None (occurrence: None)
  Receive Date: 20120531
  Receipt Date: 20120521
  Transmission Date: 20120825
  Serious: Yes (Hospitalization)
  Sender: FDA-Public Use
  Company Number: US-ELI_LILLY_AND_COMPANY-US201205007876

PATIENT
  Sex: Female
  Weight: 79.365 kg

DRUGS (5)
  1. LETAIRIS [Concomitant]
  2. COUMADIN [Concomitant]
  3. TYVASO [Concomitant]
     Indication: PULMONARY ARTERIAL HYPERTENSION
     Dosage: UNK, QID
     Route: 055
     Dates: start: 20091209
  4. ADCIRCA [Suspect]
     Dosage: UNK, UNKNOWN
     Route: 065
  5. DIURETICS [Concomitant]

REACTIONS (4)
  - FATIGUE [None]
  - HYPOKALAEMIA [None]
  - DIARRHOEA [None]
  - DIZZINESS [None]
